FAERS Safety Report 16212827 (Version 1)
Quarter: 2019Q2

REPORT INFORMATION
  Report Type: Spontaneous
  Country: US (occurrence: US)
  Receive Date: 20190418
  Receipt Date: 20190418
  Transmission Date: 20190711
  Serious: No
  Sender: FDA-Public Use
  Company Number: US-ASTELLAS-2018US041927

PATIENT
  Age: 70 Year
  Sex: Female

DRUGS (2)
  1. REGADENOSON [Suspect]
     Active Substance: REGADENOSON
     Indication: PRODUCT USED FOR UNKNOWN INDICATION
     Dosage: UNK UNK, UNKNOWN FREQ.
     Route: 065
     Dates: start: 20180920, end: 20180920
  2. TECHNETIUM (99M TC) DMSA [Suspect]
     Active Substance: TECHNETIUM TC-99M SUCCIMER
     Indication: PRODUCT USED FOR UNKNOWN INDICATION
     Dosage: UNK UNK, UNKNOWN FREQ.
     Route: 065
     Dates: start: 20180920, end: 20180920

REACTIONS (1)
  - Joint vibration [Recovered/Resolved]

NARRATIVE: CASE EVENT DATE: 20180920
